FAERS Safety Report 4682935-8 (Version None)
Quarter: 2005Q2

REPORT INFORMATION
  Report Type: 
  Country: None (occurrence: None)
  Receive Date: 20050602
  Receipt Date: 20050303
  Transmission Date: 20051028
  Serious: No
  Sender: FDA-Public Use
  Company Number: US_0503113761

PATIENT

DRUGS (1)
  1. CYMBALTA [Suspect]
     Dosage: 60 MG
     Dates: start: 20041001

REACTIONS (3)
  - CONFUSIONAL STATE [None]
  - EXCITABILITY [None]
  - THINKING ABNORMAL [None]
